FAERS Safety Report 6418725-5 (Version None)
Quarter: 2009Q4

REPORT INFORMATION
  Report Type: 
  Country: None (occurrence: None)
  Receive Date: 20091026
  Receipt Date: 20091014
  Transmission Date: 20100525
  Serious: Yes (Hospitalization)
  Sender: FDA-Public Use
  Company Number: 2009AC000221

PATIENT
  Age: 65 Year
  Sex: Female

DRUGS (60)
  1. DIGOXIN [Suspect]
     Indication: ARRHYTHMIA
     Dosage: 0.25 MG;QD
  2. NITROGLYCERIN [Concomitant]
  3. TOPROL-XL [Concomitant]
  4. LISINOPRIL [Concomitant]
  5. LEVOTHYROXINE SODIUM [Concomitant]
  6. HUMALOG [Concomitant]
  7. LANTUS [Concomitant]
  8. BUMEX [Concomitant]
  9. LOVASTATIN [Concomitant]
  10. CARAFATE [Concomitant]
  11. GABAPENTIN [Concomitant]
  12. LEVAQUIN [Concomitant]
  13. DARVOCET [Concomitant]
  14. IMDUR [Concomitant]
  15. SYNTHROID [Concomitant]
  16. OMEPRAZOLE [Concomitant]
  17. TIAGABINE HCL [Concomitant]
  18. METOPROL [Concomitant]
  19. NOVOLIN [Concomitant]
  20. METFORMIN [Concomitant]
  21. SUCRALFATE [Concomitant]
  22. TEMAZEPAM [Concomitant]
  23. GLYNASE [Concomitant]
  24. MEXITIL [Concomitant]
  25. MONOPRIL [Concomitant]
  26. QUINIDEX [Concomitant]
  27. ASPIRIN [Concomitant]
  28. QUININE [Concomitant]
  29. ZYRTEC [Concomitant]
  30. AVANDAMET [Concomitant]
  31. DOXEPIN HCL [Concomitant]
  32. LASIX [Concomitant]
  33. ZOCOR [Concomitant]
  34. TYLENOL [Concomitant]
  35. ISOSORBIDE [Concomitant]
  36. APEDIA [Concomitant]
  37. HUMULIN R [Concomitant]
  38. POTASSIUM CHLORIDE [Concomitant]
  39. GENTAMICIN [Concomitant]
  40. VIOXX [Concomitant]
  41. GLUCOPHAGE [Concomitant]
  42. AMBIEN [Concomitant]
  43. FOSINOPRIL SODIUM [Concomitant]
  44. NABUMETONE [Concomitant]
  45. HYDRO-TUSSIN [Concomitant]
  46. ZITHROMAX [Concomitant]
  47. NIFEDIPINE [Concomitant]
  48. ROZEREM [Concomitant]
  49. TRICOR [Concomitant]
  50. XALATAN [Concomitant]
  51. ANTARA (MICRONIZED) [Concomitant]
  52. MAG OXIDE [Concomitant]
  53. PROMETHEGAN [Concomitant]
  54. GAIN-TUSS [Concomitant]
  55. AZITHROMYCIN [Concomitant]
  56. LORATADINE [Concomitant]
  57. FLUCONAZOLE [Concomitant]
  58. BALACET [Concomitant]
  59. APAP W/ CODEINE [Concomitant]
  60. AMITRIPTYLINE [Concomitant]

REACTIONS (37)
  - ANGINA PECTORIS [None]
  - ASTHENIA [None]
  - CARDIAC FAILURE [None]
  - CARDIAC VALVE DISEASE [None]
  - CORONARY ARTERY OCCLUSION [None]
  - COUGH [None]
  - DEHYDRATION [None]
  - DIABETIC RETINOPATHY [None]
  - DIARRHOEA [None]
  - DIZZINESS [None]
  - DYSLIPIDAEMIA [None]
  - EJECTION FRACTION DECREASED [None]
  - ELECTROCARDIOGRAM T WAVE INVERSION [None]
  - HEADACHE [None]
  - HEART RATE DECREASED [None]
  - HEART RATE IRREGULAR [None]
  - HYPERCHOLESTEROLAEMIA [None]
  - HYPERKALAEMIA [None]
  - HYPERTENSION [None]
  - INFLUENZA LIKE ILLNESS [None]
  - INJURY [None]
  - ISCHAEMIC CARDIOMYOPATHY [None]
  - MITRAL VALVE INCOMPETENCE [None]
  - NAUSEA [None]
  - OEDEMA PERIPHERAL [None]
  - PHOTOCOAGULATION [None]
  - PYREXIA [None]
  - RENAL FAILURE [None]
  - RETINAL HAEMORRHAGE [None]
  - RETINAL TEAR [None]
  - SINUS BRADYCARDIA [None]
  - THERAPEUTIC AGENT TOXICITY [None]
  - VENTRICULAR TACHYCARDIA [None]
  - VISION BLURRED [None]
  - VITREOUS DETACHMENT [None]
  - VITREOUS HAEMORRHAGE [None]
  - VOMITING [None]
